FAERS Safety Report 5485739-1 (Version None)
Quarter: 2007Q4

REPORT INFORMATION
  Report Type: 
  Country: None (occurrence: None)
  Receive Date: 20071015
  Receipt Date: 20071003
  Transmission Date: 20080405
  Serious: Yes (Hospitalization)
  Sender: FDA-Public Use
  Company Number: AT-ROCHE-522789

PATIENT
  Sex: Male
  Weight: 61 kg

DRUGS (4)
  1. CAPECITABINE [Suspect]
     Indication: COLON CANCER
     Dosage: DOSE REDUCED
     Route: 048
     Dates: start: 20070825
  2. CAPECITABINE [Suspect]
     Route: 048
     Dates: start: 20070720
  3. BEVACIZUMAB [Suspect]
     Indication: COLON CANCER
     Dosage: DOSE REDUCED
     Route: 042
     Dates: start: 20070817
  4. BEVACIZUMAB [Suspect]
     Route: 042

REACTIONS (4)
  - ACUTE PRERENAL FAILURE [None]
  - DEHYDRATION [None]
  - DIARRHOEA [None]
  - MUCOSAL INFLAMMATION [None]
